FAERS Safety Report 6451097-9 (Version None)
Quarter: 2009Q4

REPORT INFORMATION
  Report Type: 
  Country: None (occurrence: None)
  Receive Date: 20091123
  Receipt Date: 20091111
  Transmission Date: 20100525
  Serious: Yes (Hospitalization, Other)
  Sender: FDA-Public Use
  Company Number: US-PFIZER INC-2009274349

PATIENT
  Sex: Female

DRUGS (1)
  1. REVATIO [Suspect]
     Indication: PULMONARY HYPERTENSION
     Dosage: UNK

REACTIONS (5)
  - BRONCHITIS [None]
  - CARDIAC FAILURE CONGESTIVE [None]
  - HAEMOGLOBIN DECREASED [None]
  - HAEMORRHAGE [None]
  - PNEUMONIA [None]
